FAERS Safety Report 5933036-X (Version None)
Quarter: 2008Q4

REPORT INFORMATION
  Report Type: 
  Country: None (occurrence: None)
  Receive Date: 20081023
  Receipt Date: 20060808
  Transmission Date: 20090506
  Serious: Yes (Hospitalization, Other)
  Sender: FDA-Public Use
  Company Number: 2006AL002235

PATIENT
  Age: 64 Year
  Sex: Female

DRUGS (7)
  1. DICLOFENAC SODIUM [Suspect]
     Indication: PAIN
     Dosage: 50 MG; TID; PO
     Route: 048
     Dates: start: 20060604, end: 20060605
  2. HYDROXYCHLOROQUINE [Concomitant]
  3. MELOXICAM [Concomitant]
  4. METHOTREXATE [Concomitant]
  5. ONDANSETRON HYDROCHLORIDE [Concomitant]
  6. MAGNAPEN [Concomitant]
  7. PREDNISOLONE [Concomitant]

REACTIONS (3)
  - HYPOTENSION [None]
  - TACHYCARDIA [None]
  - TOXIC EPIDERMAL NECROLYSIS [None]
